FAERS Safety Report 26108267 (Version 1)
Quarter: 2025Q4

REPORT INFORMATION
  Report Type: Spontaneous
  Country: US (occurrence: None)
  Receive Date: 20251128
  Receipt Date: 20251128
  Transmission Date: 20260117
  Serious: Yes (Other)
  Sender: FDA-CTU
  Company Number: None

PATIENT
  Age: 66 Year
  Sex: Male

DRUGS (1)
  1. HADLIMA [Suspect]
     Active Substance: ADALIMUMAB-BWWD
     Indication: Colitis ulcerative
     Dosage: OTHER FREQUENCY : ONCE WEEKLY;?
     Route: 058

REACTIONS (3)
  - Injection site pain [None]
  - Injection site rash [None]
  - Rash pruritic [None]

NARRATIVE: CASE EVENT DATE: 20251122
